FAERS Safety Report 7581044-8 (Version None)
Quarter: 2011Q2

REPORT INFORMATION
  Report Type: 
  Country: None (occurrence: None)
  Receive Date: 20110629
  Receipt Date: 20110617
  Transmission Date: 20111010
  Serious: Yes (Hospitalization)
  Sender: FDA-Public Use
  Company Number: PHHY2011NL53728

PATIENT
  Sex: Male
  Weight: 102 kg

DRUGS (6)
  1. LOSARTAN POTASSIUM [Suspect]
     Indication: HYPERTENSION
     Dosage: 100 MG, UNK
     Route: 048
     Dates: start: 20101210
  2. EPLERENONE [Concomitant]
     Indication: PROTEINURIA
     Dosage: 50 MG, UNK
  3. SIMVASTATIN [Concomitant]
     Indication: BLOOD CHOLESTEROL
     Dosage: 40 MG, UNK
  4. HYDROCHLOROTHIAZIDE [Concomitant]
     Indication: HYPERTENSION
     Dosage: 25 MG, UNK
  5. ACETOSAL [Concomitant]
     Indication: COAGULOPATHY
     Dosage: 80 MG, UNK
  6. LOSARTAN POTASSIUM [Suspect]
     Indication: PROTEINURIA

REACTIONS (1)
  - ERYSIPELAS [None]
